FAERS Safety Report 23411154 (Version 3)
Quarter: 2024Q3

REPORT INFORMATION
  Report Type: Spontaneous
  Country: US (occurrence: US)
  Receive Date: 20240117
  Receipt Date: 20240710
  Transmission Date: 20241016
  Serious: No
  Sender: BRISTOL MYERS SQUIBB
  Company Number: US-BRISTOL-MYERS SQUIBB COMPANY-2024-008321

PATIENT
  Age: 56 Year
  Sex: Male

DRUGS (1)
  1. REVLIMID [Suspect]
     Active Substance: LENALIDOMIDE
     Indication: Chronic lymphocytic leukaemia
     Dosage: FREQUENCY: 1 CAP DAILY 21 DS ON 7 DS OFF
     Route: 048

REACTIONS (3)
  - Memory impairment [Unknown]
  - Off label use [Unknown]
  - Product dose omission issue [Unknown]
